FAERS Safety Report 5746630-6 (Version None)
Quarter: 2008Q2

REPORT INFORMATION
  Report Type: 
  Country: None (occurrence: None)
  Receive Date: 20080520
  Receipt Date: 20080509
  Transmission Date: 20081010
  Serious: Yes (Other)
  Sender: FDA-Public Use
  Company Number: GXKR2008GB04322

PATIENT
  Age: 25 Year
  Sex: Female
  Weight: 58 kg

DRUGS (4)
  1. CLARITHROMYCIN [Suspect]
     Indication: BACTERIAL INFECTION
     Dosage: 250 MG, ORAL
     Route: 048
     Dates: end: 20080416
  2. IPRATROPIUM BROMIDE [Concomitant]
  3. PREDNISOLONE [Concomitant]
  4. SALBUTAMOL (SALBUTAMOL) [Concomitant]

REACTIONS (2)
  - LETHARGY [None]
  - PALPITATIONS [None]
